FAERS Safety Report 11595693 (Version 1)
Quarter: 2015Q4

REPORT INFORMATION
  Report Type: Spontaneous
  Country: US (occurrence: US)
  Receive Date: 20151006
  Receipt Date: 20151006
  Transmission Date: 20160304
  Serious: Yes (Death, Other)
  Sender: FDA-Public Use
  Company Number: US-BRISTOL-MYERS SQUIBB COMPANY-BMS-2015-066875

PATIENT
  Sex: Male

DRUGS (2)
  1. OPDIVO [Suspect]
     Active Substance: NIVOLUMAB
     Indication: BLADDER CANCER
     Dosage: 160 MG Q2WK
     Route: 065
     Dates: end: 2015
  2. OPDIVO [Suspect]
     Active Substance: NIVOLUMAB
     Dosage: 160 MG, Q2WK

REACTIONS (2)
  - Death [Fatal]
  - Off label use [None]
